FAERS Safety Report 11824764 (Version 4)
Quarter: 2016Q1

REPORT INFORMATION
  Report Type: Report from Study
  Country: CA (occurrence: CA)
  Receive Date: 20151210
  Receipt Date: 20160121
  Transmission Date: 20160525
  Serious: Yes (Hospitalization, Other)
  Sender: FDA-Public Use
  Company Number: CA-GILEAD-2015-0187113

PATIENT
  Age: 52 Year
  Sex: Male

DRUGS (7)
  1. IBAVYR [Concomitant]
     Active Substance: RIBAVIRIN
     Dosage: 800 MG, QD
     Route: 048
     Dates: start: 20151216
  2. METHADONE [Concomitant]
     Active Substance: METHADONE HYDROCHLORIDE
     Dosage: 9 MG, UNK
     Route: 048
     Dates: start: 2014
  3. SALBUTAMOL [Concomitant]
     Active Substance: ALBUTEROL
  4. IBAVYR [Concomitant]
     Active Substance: RIBAVIRIN
     Dosage: 200 MG / 400 MG QD
     Route: 048
  5. SOFOSBUVIR [Suspect]
     Active Substance: SOFOSBUVIR
     Indication: CHRONIC HEPATITIS C
     Dosage: 400 MG, QD
     Route: 048
     Dates: start: 20151124
  6. PEGASYS [Suspect]
     Active Substance: PEGINTERFERON ALFA-2A
     Indication: CHRONIC HEPATITIS C
     Dosage: 1+35TAB INJECTION/ORAL
     Route: 058
     Dates: start: 20151124, end: 20151214
  7. IBAVYR [Concomitant]
     Active Substance: RIBAVIRIN
     Indication: CHRONIC HEPATITIS C
     Dosage: 600 MG QAM, 400 MG QPM
     Route: 048
     Dates: start: 20151124

REACTIONS (23)
  - Aggression [Recovering/Resolving]
  - Toothache [Unknown]
  - Mood altered [Unknown]
  - Haemoglobin decreased [Unknown]
  - Chest discomfort [Unknown]
  - Hepatic pain [Unknown]
  - Mood swings [Unknown]
  - Agitation [Unknown]
  - Abnormal dreams [Unknown]
  - Feeling hot [Unknown]
  - Dysgeusia [Unknown]
  - Feeling abnormal [Unknown]
  - Suicidal ideation [Recovering/Resolving]
  - Anaemia [Recovered/Resolved]
  - Activities of daily living impaired [Unknown]
  - Drug intolerance [Unknown]
  - Memory impairment [Unknown]
  - Dyspnoea [Unknown]
  - Insomnia [Unknown]
  - Hunger [Unknown]
  - Dizziness [Unknown]
  - Depression [Unknown]
  - Homicidal ideation [Recovering/Resolving]

NARRATIVE: CASE EVENT DATE: 20151203
